FAERS Safety Report 21657363 (Version 1)
Quarter: 2022Q4

REPORT INFORMATION
  Report Type: Spontaneous
  Country: US (occurrence: US)
  Receive Date: 20221129
  Receipt Date: 20221129
  Transmission Date: 20230113
  Serious: No
  Sender: FDA-Public Use
  Company Number: US-BEH-2022152299

PATIENT
  Age: 55 Year
  Sex: Male

DRUGS (2)
  1. PRIVIGEN [Suspect]
     Active Substance: HUMAN IMMUNOGLOBULIN G
     Indication: Polymyositis
     Dosage: 100 GRAM/100 ML, QD FOR 2 DAYS EVERY MONTH
     Route: 042
     Dates: start: 20221031
  2. PRIVIGEN [Suspect]
     Active Substance: HUMAN IMMUNOGLOBULIN G
     Dosage: 100 GRAM/100 ML, QD FOR 2 DAYS EVERY MONTH
     Route: 042
     Dates: start: 20221101

REACTIONS (9)
  - Nausea [Unknown]
  - Vomiting [Unknown]
  - Headache [Recovered/Resolved]
  - Nausea [Unknown]
  - Vomiting [Unknown]
  - Headache [Recovered/Resolved]
  - Ocular discomfort [Unknown]
  - No adverse event [Unknown]
  - Off label use [Unknown]

NARRATIVE: CASE EVENT DATE: 20221031
